FAERS Safety Report 17185801 (Version 2)
Quarter: 2025Q3

REPORT INFORMATION
  Report Type: Spontaneous
  Country: IN (occurrence: IN)
  Receive Date: 20191220
  Receipt Date: 20250901
  Transmission Date: 20251020
  Serious: Yes (Death, Life-Threatening, Other)
  Sender: GLENMARK
  Company Number: IN-GLENMARK PHARMACEUTICALS-2019GMK044914

PATIENT
  Age: 45 Year
  Sex: Male

DRUGS (6)
  1. TACROLIMUS [Suspect]
     Active Substance: TACROLIMUS
     Indication: Immunosuppressant drug therapy
     Route: 065
  2. TACROLIMUS [Suspect]
     Active Substance: TACROLIMUS
     Route: 065
  3. PREDNISONE [Suspect]
     Active Substance: PREDNISONE
     Indication: Immunosuppressant drug therapy
     Dosage: 10 MG, OD
     Route: 065
  4. PREDNISONE [Suspect]
     Active Substance: PREDNISONE
     Dosage: 20 MG, OD
     Route: 065
  5. MYCOPHENOLATE SODIUM [Suspect]
     Active Substance: MYCOPHENOLATE SODIUM
     Indication: Immunosuppressant drug therapy
     Dosage: 720 MG, BID (PER 12 HOURS)
     Route: 065
  6. CYCLOSPORINE [Concomitant]
     Active Substance: CYCLOSPORINE
     Indication: Immunosuppressant drug therapy
     Route: 065

REACTIONS (5)
  - Transplant dysfunction [Fatal]
  - Plasma cell myeloma [Fatal]
  - Nephropathy [Fatal]
  - Pneumothorax [Unknown]
  - Pleural effusion [Unknown]
